FAERS Safety Report 19790080 (Version 1)
Quarter: 2021Q3

REPORT INFORMATION
  Report Type: Spontaneous
  Country: US (occurrence: US)
  Receive Date: 20210905
  Receipt Date: 20210905
  Transmission Date: 20211014
  Serious: No
  Sender: FDA-Public Use
  Company Number: US-SA-2021SA290546

PATIENT
  Sex: Female

DRUGS (2)
  1. MODERNA COVID?19 VACCINE [Concomitant]
     Active Substance: CX-024414
  2. KEVZARA [Suspect]
     Active Substance: SARILUMAB

REACTIONS (1)
  - Illness [Unknown]

NARRATIVE: CASE EVENT DATE: 202105
